FAERS Safety Report 6466830-X (Version None)
Quarter: 2009Q4

REPORT INFORMATION
  Report Type: 
  Country: None (occurrence: None)
  Receive Date: 20091202
  Receipt Date: 20091124
  Transmission Date: 20100525
  Serious: Yes (Other)
  Sender: FDA-Public Use
  Company Number: US-TEVA-216196USA

PATIENT
  Sex: Female

DRUGS (12)
  1. TRAMADOL HCL [Suspect]
     Indication: ARTHRITIS
  2. OXYBATE SODIUM [Suspect]
     Indication: SOMNOLENCE
     Dosage: 6 GM (3 GM, 2 IN 1 DAY)
     Route: 048
     Dates: start: 20080910
  3. OXYBATE SODIUM [Suspect]
     Dosage: 7.5 GM (3.75 GM, 2 IN 1 DAY)
     Route: 048
  4. OXYBATE SODIUM [Suspect]
     Dosage: 9 GM (4.5 GM, 2 IN 1 DAY)
     Route: 048
  5. OXYBATE SODIUM [Suspect]
     Dosage: 6 GM (3 GM, 2 IN 1 DAY)
     Route: 048
  6. ADALIMUMAB [Concomitant]
  7. IBUPROFEN [Concomitant]
  8. HERBAL SUPPLEMENT [Concomitant]
  9. COLECALCIFEROL [Concomitant]
  10. VITAMIN AND MINERAL PRENATAL SUPPLEMENT W/ FOLIC ACID CAP [Concomitant]
  11. PROMETHAZINE [Concomitant]
  12. DEXTROAMPHETAMINE SULFATE [Concomitant]

REACTIONS (2)
  - SLEEP APNOEA SYNDROME [None]
  - VOMITING [None]
